FAERS Safety Report 5994305-0 (Version None)
Quarter: 2008Q4

REPORT INFORMATION
  Report Type: 
  Country: None (occurrence: None)
  Receive Date: 20081212
  Receipt Date: 20081208
  Transmission Date: 20090506
  Serious: Yes (Hospitalization, Other)
  Sender: FDA-Public Use
  Company Number: PHHO2008US13518

PATIENT
  Sex: Female
  Weight: 70.295 kg

DRUGS (20)
  1. LOPRESSOR [Suspect]
     Indication: HYPERTENSION
     Dosage: 25 MG, QD
     Route: 048
     Dates: start: 20030812, end: 20040308
  2. LOPRESSOR [Suspect]
     Dosage: 50 MG, QD
     Route: 048
     Dates: start: 20040309, end: 20040310
  3. LOPRESSOR [Suspect]
     Dosage: 25 MG, QD
     Route: 048
     Dates: start: 20040310, end: 20041006
  4. LOPRESSOR [Suspect]
     Dosage: 50 MG, QD
     Route: 048
     Dates: start: 20041007
  5. ROTIGOTINE [Suspect]
     Dosage: 16 MG, QD
     Route: 062
     Dates: start: 20030530
  6. SINEMET [Suspect]
     Indication: PARKINSON'S DISEASE
     Dosage: 100 MG, QID
     Route: 048
     Dates: start: 20031231, end: 20040107
  7. SINEMET [Suspect]
     Dosage: 100 MG, TID
     Route: 048
     Dates: start: 20040107, end: 20050228
  8. SINEMET [Suspect]
     Dosage: 100 MG, QID
     Route: 048
     Dates: start: 20050301
  9. SINEMET [Suspect]
     Dosage: 25/250MG SIX TIMES A DAY
     Dates: end: 20080101
  10. SINEMET [Suspect]
     Dosage: 25/250MG FOUR TIMES A DAY
     Dates: start: 20080101
  11. TOCOPHEROL CONCENTRATE CAP [Concomitant]
     Dosage: UNK
  12. OXYCODONE HCL [Concomitant]
     Dosage: UNK
  13. IBUPROFEN [Concomitant]
     Dosage: UNK
  14. DEXTROPROPOXYPHENE [Concomitant]
     Dosage: UNK
  15. ISPAGHULA HUSK [Concomitant]
     Dosage: UNK
  16. TEMAZEPAM [Concomitant]
     Dosage: UNK
  17. CYMBALTA [Concomitant]
     Dosage: UNK
  18. HYPNOTICS AND SEDATIVES [Concomitant]
  19. ANTIVERT [Concomitant]
  20. PLANTAGO OVATA [Concomitant]
     Dosage: UNK

REACTIONS (17)
  - ARTHRALGIA [None]
  - BALANCE DISORDER [None]
  - CARDIOMEGALY [None]
  - CHRONIC OBSTRUCTIVE PULMONARY DISEASE [None]
  - DEHYDRATION [None]
  - DELIRIUM [None]
  - ELECTROCARDIOGRAM T WAVE ABNORMAL [None]
  - FALL [None]
  - HALLUCINATION [None]
  - LIMB DEFORMITY [None]
  - MENTAL STATUS CHANGES POSTOPERATIVE [None]
  - NEPHROSCLEROSIS [None]
  - OPEN REDUCTION OF FRACTURE [None]
  - PAIN IN EXTREMITY [None]
  - PSYCHOTIC DISORDER [None]
  - ULNA FRACTURE [None]
  - WRIST FRACTURE [None]
